FAERS Safety Report 17913156 (Version 1)
Quarter: 2020Q2

REPORT INFORMATION
  Report Type: Spontaneous
  Country: JP (occurrence: JP)
  Receive Date: 20200618
  Receipt Date: 20200618
  Transmission Date: 20200714
  Serious: Yes (Other)
  Sender: FDA-Public Use
  Company Number: PHJP2019JP010841

PATIENT
  Age: 51 Year
  Sex: Female

DRUGS (14)
  1. REBAMIPIDE [Concomitant]
     Active Substance: REBAMIPIDE
     Indication: PRODUCT USED FOR UNKNOWN INDICATION
     Dosage: 100MG, PRN
     Route: 048
     Dates: start: 20190111, end: 20190125
  2. RULID [Concomitant]
     Active Substance: ROXITHROMYCIN
     Indication: PRODUCT USED FOR UNKNOWN INDICATION
     Dosage: 150 MG, BID
     Route: 048
     Dates: start: 20191227, end: 20200220
  3. RULID [Concomitant]
     Active Substance: ROXITHROMYCIN
     Dosage: 150 MG, QD
     Route: 048
     Dates: start: 20200221, end: 20200319
  4. MIYA-BM [Concomitant]
     Active Substance: CLOSTRIDIUM BUTYRICUM SPORES STRAIN M-55
     Dosage: 1 DF, QD
     Route: 048
     Dates: start: 20200221, end: 20200319
  5. MEKINIST [Suspect]
     Active Substance: TRAMETINIB DIMETHYL SULFOXIDE
     Indication: MALIGNANT MELANOMA
     Dosage: 2 MG, QD
     Route: 048
     Dates: start: 20190111
  6. LOXOPROFEN [Concomitant]
     Active Substance: LOXOPROFEN
     Indication: PRODUCT USED FOR UNKNOWN INDICATION
     Dosage: 60MG, PRN
     Route: 048
     Dates: start: 20190111, end: 20190125
  7. PRIMPERAN [Concomitant]
     Active Substance: METOCLOPRAMIDE HYDROCHLORIDE
     Indication: PRODUCT USED FOR UNKNOWN INDICATION
     Dosage: 5 MG,AS NEEDED
     Route: 048
     Dates: start: 20190125, end: 20190417
  8. TAFINLAR [Suspect]
     Active Substance: DABRAFENIB MESYLATE
     Indication: MALIGNANT MELANOMA
     Dosage: 150 MG, BID
     Route: 048
     Dates: start: 20190111
  9. REBAMIPIDE [Concomitant]
     Active Substance: REBAMIPIDE
     Dosage: 100 MG, BID
     Route: 048
     Dates: start: 20190125, end: 20190510
  10. MAGMITT [Concomitant]
     Active Substance: MAGNESIUM OXIDE
     Indication: PRODUCT USED FOR UNKNOWN INDICATION
     Dosage: 330 MG,AS NEEDED
     Route: 048
     Dates: start: 20190118, end: 20190422
  11. GASMOTIN [Concomitant]
     Active Substance: MOSAPRIDE CITRATE
     Indication: PRODUCT USED FOR UNKNOWN INDICATION
     Dosage: 5 MG, BID
     Route: 048
     Dates: start: 20190118, end: 20190125
  12. ALLEGRA [Concomitant]
     Active Substance: FEXOFENADINE HYDROCHLORIDE
     Indication: PRODUCT USED FOR UNKNOWN INDICATION
     Dosage: 60 MG, BID
     Route: 048
     Dates: start: 20190307, end: 20190510
  13. CALONAL [Concomitant]
     Active Substance: ACETAMINOPHEN
     Indication: PRODUCT USED FOR UNKNOWN INDICATION
     Dosage: 400MG, PRN
     Route: 048
     Dates: start: 20190125
  14. MIYA-BM [Concomitant]
     Active Substance: CLOSTRIDIUM BUTYRICUM SPORES STRAIN M-55
     Indication: PRODUCT USED FOR UNKNOWN INDICATION
     Dosage: 1 DF, BID
     Route: 048
     Dates: start: 20191227, end: 20200220

REACTIONS (5)
  - Panniculitis [Recovered/Resolved]
  - Nodular rash [Unknown]
  - Erythema [Unknown]
  - Pyrexia [Unknown]
  - Hypothyroidism [Recovering/Resolving]

NARRATIVE: CASE EVENT DATE: 20190118
